FAERS Safety Report 25011666 (Version 1)
Quarter: 2025Q1

REPORT INFORMATION
  Report Type: Spontaneous
  Country: BE (occurrence: BE)
  Receive Date: 20250226
  Receipt Date: 20250226
  Transmission Date: 20250408
  Serious: Yes (Other)
  Sender: ORGANON
  Company Number: BE-ORGANON-O2502BEL002146

PATIENT
  Sex: Female

DRUGS (1)
  1. ETONOGESTREL [Suspect]
     Active Substance: ETONOGESTREL
     Route: 059

REACTIONS (3)
  - Device embolisation [Not Recovered/Not Resolved]
  - Complication associated with device [Recovered/Resolved]
  - Circumstance or information capable of leading to device use error [Unknown]
